FAERS Safety Report 19655705 (Version 1)
Quarter: 2021Q3

REPORT INFORMATION
  Report Type: Spontaneous
  Country: BE (occurrence: BE)
  Receive Date: 20210804
  Receipt Date: 20210804
  Transmission Date: 20211014
  Serious: Yes (Hospitalization, Other)
  Sender: FDA-Public Use
  Company Number: BE-BION-009972

PATIENT
  Age: 33 Year
  Sex: Female

DRUGS (5)
  1. LORAZEPAM. [Interacting]
     Active Substance: LORAZEPAM
     Indication: CATATONIA
     Dosage: BEFORE ADMISSION
     Route: 042
  2. LITHIUM. [Concomitant]
     Active Substance: LITHIUM
     Indication: SCHIZOAFFECTIVE DISORDER
  3. VALPROIC ACID. [Suspect]
     Active Substance: VALPROIC ACID
     Indication: EPILEPSY
     Dosage: GRADUALLY INCREASED TO 800 MG PER DAY SPREAD OVER 2 DOSES
  4. ARIPIPRAZOLE. [Concomitant]
     Active Substance: ARIPIPRAZOLE
     Indication: SCHIZOAFFECTIVE DISORDER
  5. CLOZAPINE. [Concomitant]
     Active Substance: CLOZAPINE
     Indication: SCHIZOAFFECTIVE DISORDER

REACTIONS (3)
  - Stupor [Recovered/Resolved]
  - Metabolic encephalopathy [Recovered/Resolved]
  - Drug interaction [Unknown]
